FAERS Safety Report 8962910 (Version 1)
Quarter: 2012Q4

REPORT INFORMATION
  Report Type: 
  Country: US (occurrence: US)
  Receive Date: 20121213
  Receipt Date: 20121213
  Transmission Date: 20130627
  Serious: Yes (Other)
  Sender: FDA-Public Use
  Company Number: US-GLAXOSMITHKLINE-A1005278A

PATIENT
  Sex: Female

DRUGS (1)
  1. BENLYSTA [Suspect]
     Indication: PRODUCT USED FOR UNKNOWN INDICATION
     Route: 042
     Dates: start: 201211

REACTIONS (5)
  - Urinary tract infection [Unknown]
  - Infusion related reaction [Unknown]
  - Rash erythematous [Unknown]
  - Feeling hot [Unknown]
  - Chest discomfort [Unknown]
